FAERS Safety Report 5969896-6 (Version None)
Quarter: 2008Q4

REPORT INFORMATION
  Report Type: 
  Country: None (occurrence: None)
  Receive Date: 20081126
  Receipt Date: 20081114
  Transmission Date: 20090506
  Serious: Yes (Death)
  Sender: FDA-Public Use
  Company Number: PL-PFIZER INC-2008096852

PATIENT
  Sex: Female

DRUGS (1)
  1. VFEND [Suspect]

REACTIONS (1)
  - GENERAL PHYSICAL HEALTH DETERIORATION [None]
